FAERS Safety Report 8245833-9 (Version None)
Quarter: 2012Q1

REPORT INFORMATION
  Report Type: 
  Country: None (occurrence: None)
  Receive Date: 20120330
  Receipt Date: 20120322
  Transmission Date: 20120608
  Serious: Yes (Other)
  Sender: FDA-Public Use
  Company Number: US-AMGEN-USASP2012018629

PATIENT
  Sex: Male

DRUGS (3)
  1. EFFEXOR [Concomitant]
     Dosage: UNK
  2. ENBREL [Suspect]
     Indication: PSORIASIS
     Dosage: UNK
     Dates: start: 20090101
  3. ASPIRIN [Concomitant]
     Dosage: UNK

REACTIONS (1)
  - THYROID CANCER [None]
